FAERS Safety Report 12181723 (Version 2)
Quarter: 2016Q2

REPORT INFORMATION
  Report Type: Spontaneous
  Country: US (occurrence: US)
  Receive Date: 20160315
  Receipt Date: 20160428
  Transmission Date: 20160815
  Serious: Yes (Hospitalization, Other)
  Sender: FDA-Public Use
  Company Number: US-BAYER-2016-051127

PATIENT
  Age: 35 Year
  Sex: Female
  Weight: 104.31 kg

DRUGS (3)
  1. METFORMIN [Concomitant]
     Active Substance: METFORMIN HYDROCHLORIDE
  2. MIRENA [Suspect]
     Active Substance: LEVONORGESTREL
     Indication: CONTRACEPTION
     Dosage: 20 MCG/24HR, CONT
     Route: 015
     Dates: start: 20120516, end: 20130510
  3. LEXAPRO [Concomitant]
     Active Substance: ESCITALOPRAM OXALATE

REACTIONS (6)
  - Product use issue [None]
  - Genital haemorrhage [None]
  - Device dislocation [None]
  - Device issue [None]
  - Abdominal pain lower [None]
  - Depression [None]

NARRATIVE: CASE EVENT DATE: 201207
